FAERS Safety Report 10743967 (Version 2)
Quarter: 2015Q2

REPORT INFORMATION
  Report Type: Report from Study
  Country: US (occurrence: US)
  Receive Date: 20150128
  Receipt Date: 20150414
  Transmission Date: 20150821
  Serious: Yes (Hospitalization, Other)
  Sender: FDA-Public Use
  Company Number: US-BIOGENIDEC-2015BI009474

PATIENT
  Age: 62 Year
  Sex: Male

DRUGS (1)
  1. TECFIDERA [Suspect]
     Active Substance: DIMETHYL FUMARATE
     Indication: MULTIPLE SCLEROSIS
     Route: 048
     Dates: start: 20140623

REACTIONS (16)
  - Cardiac perforation [Recovered/Resolved]
  - Skin abrasion [Unknown]
  - Chest pain [Recovered/Resolved]
  - Cardiac pacemaker insertion [Recovered/Resolved]
  - Hypotension [Recovered/Resolved]
  - Cognitive disorder [Not Recovered/Not Resolved]
  - Musculoskeletal pain [Unknown]
  - Dyspnoea [Recovered/Resolved]
  - Spinal pain [Unknown]
  - Contusion [Unknown]
  - General symptom [Recovered/Resolved]
  - Fall [Recovered/Resolved]
  - Pericarditis [Not Recovered/Not Resolved]
  - Mobility decreased [Not Recovered/Not Resolved]
  - Coronary arterial stent insertion [Recovered/Resolved]
  - Amnesia [Not Recovered/Not Resolved]

NARRATIVE: CASE EVENT DATE: 201411
